FAERS Safety Report 17102466 (Version 1)
Quarter: 2019Q4

REPORT INFORMATION
  Report Type: Spontaneous
  Country: US (occurrence: US)
  Receive Date: 20191202
  Receipt Date: 20191202
  Transmission Date: 20200122
  Serious: Yes (Other)
  Sender: FDA-Public Use
  Company Number: None

PATIENT
  Age: 32 Year
  Sex: Female

DRUGS (4)
  1. BUPRENORPHINE/NALAXONE TABLETS [Suspect]
     Active Substance: BUPRENORPHINE HYDROCHLORIDE\NALOXONE HYDROCHLORIDE
     Indication: DRUG DEPENDENCE
     Route: 048
     Dates: start: 20180703, end: 20191127
  2. BUPRENORPHINE NALOXONE 8-2MG TABLETS [Suspect]
     Active Substance: BUPRENORPHINE HYDROCHLORIDE\NALOXONE HYDROCHLORIDE
     Dates: end: 20191202
  3. BUPRENORPHINE NALOXONE 8-NG TABLETS [Suspect]
     Active Substance: BUPRENORPHINE\NALOXONE
     Dates: start: 20180614, end: 20181109
  4. BUPRENORPHINE HCL 8MG TABLETS [Suspect]
     Active Substance: BUPRENORPHINE HYDROCHLORIDE
     Dates: start: 20181116, end: 20190621

REACTIONS (7)
  - Product formulation issue [None]
  - Exposure during pregnancy [None]
  - Pregnancy [None]
  - Product intolerance [None]
  - Aptyalism [None]
  - Nausea [None]
  - Retching [None]

NARRATIVE: CASE EVENT DATE: 20191127
